FAERS Safety Report 7798774-5 (Version None)
Quarter: 2011Q4

REPORT INFORMATION
  Report Type: 
  Country: None (occurrence: None)
  Receive Date: 20111006
  Receipt Date: 20110928
  Transmission Date: 20120403
  Serious: Yes (Other)
  Sender: FDA-Public Use
  Company Number: PHHY2011NL86853

PATIENT
  Sex: Male

DRUGS (3)
  1. CETIRIZINE HCL [Suspect]
     Indication: HYPERSENSITIVITY
     Dosage: 1 DF, QD
     Route: 048
     Dates: start: 20110901, end: 20110902
  2. INDOMETHACIN [Suspect]
     Indication: SURGERY
     Dosage: 5 ML, BID
     Route: 047
     Dates: start: 20110829
  3. OFLOXACIN [Suspect]
     Indication: SURGERY
     Dosage: 5 ML, QID
     Route: 047
     Dates: start: 20110829

REACTIONS (1)
  - FLOPPY IRIS SYNDROME [None]
